FAERS Safety Report 7792054-X (Version None)
Quarter: 2011Q4

REPORT INFORMATION
  Report Type: 
  Country: None (occurrence: None)
  Receive Date: 20111003
  Receipt Date: 20110914
  Transmission Date: 20120403
  Serious: No
  Sender: FDA-Public Use
  Company Number: US-B.I. PHARMACEUTICALS,INC./RIDGEFIELD-2010-BP-15168BP

PATIENT
  Age: 83 Year
  Sex: Male

DRUGS (13)
  1. FUROSEMIDE [Concomitant]
     Indication: OEDEMA
     Dosage: 20 MG
     Route: 048
  2. INSULIN [Concomitant]
     Indication: DIABETES MELLITUS
  3. LEVEMIR [Concomitant]
     Indication: DIABETES MELLITUS
  4. ASPIRIN [Concomitant]
  5. LIPITOR [Concomitant]
  6. ATORVASTATIN [Concomitant]
  7. CARVEDILOL [Concomitant]
  8. GLYBURIDE [Concomitant]
  9. SPIRIVA [Suspect]
     Indication: CHRONIC OBSTRUCTIVE PULMONARY DISEASE
     Dosage: 18 MCG
     Route: 055
     Dates: start: 20090101, end: 20110808
  10. METFORMIN HCL [Concomitant]
  11. ISOSORBID MONONITRATE [Concomitant]
  12. CAPOTEN [Concomitant]
  13. POTASSIUM CHLORIDE (KLOR-CON) [Concomitant]

REACTIONS (5)
  - SKIN DEPIGMENTATION [None]
  - PENILE PAIN [None]
  - URINE FLOW DECREASED [None]
  - DYSURIA [None]
  - PENILE ERYTHEMA [None]
